FAERS Safety Report 17721616 (Version 2)
Quarter: 2020Q2

REPORT INFORMATION
  Report Type: Spontaneous
  Country: US (occurrence: US)
  Receive Date: 20200429
  Receipt Date: 20200507
  Transmission Date: 20200714
  Serious: No
  Sender: FDA-Public Use
  Company Number: US-GW PHARMA-202004USGW01528

PATIENT

DRUGS (2)
  1. EPIDIOLEX [Suspect]
     Active Substance: CANNABIDIOL
     Indication: EPILEPSY
     Dosage: 10.07 MG/KG/DAY, 690 MILLIGRAM, BID
     Route: 048
     Dates: start: 20200225, end: 2020
  2. EPIDIOLEX [Suspect]
     Active Substance: CANNABIDIOL
     Indication: FOCAL DYSCOGNITIVE SEIZURES
     Dosage: UNK (INCREASE IN DRUG)
     Route: 048
     Dates: start: 2020

REACTIONS (7)
  - Somnolence [Unknown]
  - Headache [Recovering/Resolving]
  - Weight fluctuation [Unknown]
  - Migraine [Unknown]
  - Decreased appetite [Unknown]
  - Abdominal distension [Unknown]
  - Product use in unapproved indication [Not Recovered/Not Resolved]

NARRATIVE: CASE EVENT DATE: 20200225
